FAERS Safety Report 23699130 (Version 4)
Quarter: 2024Q4

REPORT INFORMATION
  Report Type: Spontaneous
  Country: US (occurrence: US)
  Receive Date: 20240402
  Receipt Date: 20241217
  Transmission Date: 20250115
  Serious: No
  Sender: PHARMING GROUP
  Company Number: US-PHARMING-PHAUS2024000276

PATIENT

DRUGS (5)
  1. RUCONEST [Suspect]
     Active Substance: CONESTAT ALFA
     Indication: Hereditary angioedema
     Dosage: 3700 IU, TWICE WEEKLY
     Route: 042
     Dates: start: 20200630
  2. RUCONEST [Suspect]
     Active Substance: CONESTAT ALFA
     Dosage: 3800 IU, TWICE WEEKLY
     Route: 042
     Dates: start: 202007
  3. RUCONEST [Suspect]
     Active Substance: CONESTAT ALFA
     Dosage: 3800 IU, PRN
     Route: 042
     Dates: start: 202007
  4. TAKHZYRO [Concomitant]
     Active Substance: LANADELUMAB-FLYO
     Indication: Product used for unknown indication
  5. DUPIXENT [Concomitant]
     Active Substance: DUPILUMAB
     Indication: Asthma

REACTIONS (3)
  - Weight fluctuation [Unknown]
  - Underdose [Unknown]
  - Intentional product use issue [Unknown]
